FAERS Safety Report 19438349 (Version 1)
Quarter: 2021Q2

REPORT INFORMATION
  Report Type: Spontaneous
  Country: GB (occurrence: GB)
  Receive Date: 20210618
  Receipt Date: 20210618
  Transmission Date: 20210717
  Serious: Yes (Life-Threatening)
  Sender: FDA-Public Use
  Company Number: GB-ASTRAZENECA-2021A531564

PATIENT
  Age: 72 Year
  Sex: Male
  Weight: 96 kg

DRUGS (9)
  1. EZETIMIB [Concomitant]
     Active Substance: EZETIMIBE
     Indication: ILL-DEFINED DISORDER
  2. FLECAINIDE [Concomitant]
     Active Substance: FLECAINIDE
     Indication: ILL-DEFINED DISORDER
  3. HUMULIN L [Concomitant]
     Active Substance: INSULIN HUMAN
     Indication: ILL-DEFINED DISORDER
  4. DAPAGLIFLOZIN. [Suspect]
     Active Substance: DAPAGLIFLOZIN
     Indication: DIABETES MELLITUS
     Dosage: 10MG
     Route: 048
     Dates: start: 20150317, end: 20210614
  5. METFORMINE [Concomitant]
     Active Substance: METFORMIN HYDROCHLORIDE
     Indication: ILL-DEFINED DISORDER
  6. MONOPOST [Concomitant]
     Active Substance: LATANOPROST
     Indication: ILL-DEFINED DISORDER
  7. LINAGLIPTIN [Concomitant]
     Active Substance: LINAGLIPTIN
     Indication: ILL-DEFINED DISORDER
  8. LOSARTAN. [Concomitant]
     Active Substance: LOSARTAN
     Indication: ILL-DEFINED DISORDER
  9. BISOPROLOL [Concomitant]
     Active Substance: BISOPROLOL
     Indication: ILL-DEFINED DISORDER

REACTIONS (1)
  - Peripheral arterial occlusive disease [Not Recovered/Not Resolved]

NARRATIVE: CASE EVENT DATE: 20210605
